FAERS Safety Report 4785458-0 (Version None)
Quarter: 2005Q3

REPORT INFORMATION
  Report Type: 
  Country: None (occurrence: None)
  Receive Date: 20050929
  Receipt Date: 20050915
  Transmission Date: 20060218
  Serious: Yes (Hospitalization)
  Sender: FDA-Public Use
  Company Number: S05-SWE-03491-01

PATIENT
  Age: 62 Year
  Sex: Female

DRUGS (7)
  1. CITALOPRAM HYDROBROMIDE [Suspect]
     Indication: DEPRESSION
     Dosage: 10 MG QD PO
     Route: 048
  2. METHOTREXATE [Suspect]
     Indication: RHEUMATOID ARTHRITIS
     Dosage: 20 MG QD PO
     Route: 048
  3. SELOKEN ZOC                   (METOPROLOL SUCCINATE) [Concomitant]
  4. NORVASC [Concomitant]
  5. FOLACIN [Concomitant]
  6. FUROSEMIDE [Concomitant]
  7. PANOCOD [Concomitant]

REACTIONS (3)
  - CEREBRAL HAEMORRHAGE [None]
  - FALL [None]
  - HAEMORRHAGIC DIATHESIS [None]
